FAERS Safety Report 5450256-1 (Version None)
Quarter: 2007Q3

REPORT INFORMATION
  Report Type: 
  Country: None (occurrence: None)
  Receive Date: 20070912
  Receipt Date: 20070901
  Transmission Date: 20080115
  Serious: Yes (Other)
  Sender: FDA-Public Use
  Company Number: US-PFIZER INC-2007042516

PATIENT
  Sex: Female
  Weight: 65 kg

DRUGS (10)
  1. CHANTIX [Suspect]
     Indication: SMOKING CESSATION THERAPY
  2. LEXAPRO [Concomitant]
  3. PROTONIX [Concomitant]
  4. KLONOPIN [Concomitant]
  5. NEURONTIN [Concomitant]
  6. TIZANIDINE HCL [Concomitant]
  7. ADVAIR DISKUS 100/50 [Concomitant]
  8. FLONASE [Concomitant]
  9. CLARITIN [Concomitant]
  10. HUMAN GROWTH HORMONE, RECOMBINANT [Concomitant]

REACTIONS (6)
  - ABASIA [None]
  - ANAEMIA [None]
  - INCREASED UPPER AIRWAY SECRETION [None]
  - MUSCULOSKELETAL STIFFNESS [None]
  - RESPIRATORY DISORDER [None]
  - TREMOR [None]
